FAERS Safety Report 7374292-3 (Version None)
Quarter: 2011Q1

REPORT INFORMATION
  Report Type: 
  Country: None (occurrence: None)
  Receive Date: 20110317
  Receipt Date: 20110303
  Transmission Date: 20110831
  Serious: Yes (Hospitalization)
  Sender: FDA-Public Use
  Company Number: 2011SP000693

PATIENT
  Age: 71 Year
  Sex: Female
  Weight: 72.6 kg

DRUGS (7)
  1. SINGULAIR [Concomitant]
  2. SPIRIVA [Concomitant]
  3. ALVESCO [Suspect]
     Indication: CHRONIC OBSTRUCTIVE PULMONARY DISEASE
     Dosage: 80 UG;QOD;INHALATION, 80 UG/QD;INHALATION
     Route: 055
     Dates: start: 20100101, end: 20101201
  4. ALVESCO [Suspect]
     Indication: CHRONIC OBSTRUCTIVE PULMONARY DISEASE
     Dosage: 80 UG;QOD;INHALATION, 80 UG/QD;INHALATION
     Route: 055
     Dates: start: 20101201
  5. FOSAMAX [Concomitant]
  6. ZOCOR [Concomitant]
  7. SYNTHROID [Concomitant]

REACTIONS (3)
  - COLITIS ISCHAEMIC [None]
  - ASTHMA [None]
  - CONDITION AGGRAVATED [None]
